FAERS Safety Report 18325424 (Version 1)
Quarter: 2020Q3

REPORT INFORMATION
  Report Type: Spontaneous
  Country: US (occurrence: US)
  Receive Date: 20200929
  Receipt Date: 20200929
  Transmission Date: 20201103
  Serious: Yes (Disabling, Other)
  Sender: FDA-Public Use
  Company Number: US-PURDUE-USA-2020-0168215

PATIENT
  Sex: Male

DRUGS (1)
  1. OXYCONTIN [Suspect]
     Active Substance: OXYCODONE HYDROCHLORIDE
     Indication: PRODUCT USED FOR UNKNOWN INDICATION
     Dosage: UNK
     Route: 048

REACTIONS (11)
  - Diarrhoea [Unknown]
  - Restlessness [Unknown]
  - Medication error [Unknown]
  - Anxiety [Unknown]
  - Disability [Unknown]
  - Withdrawal syndrome [Unknown]
  - Pain [Unknown]
  - Asthenia [Unknown]
  - Emotional distress [Unknown]
  - Drug dependence [Unknown]
  - Decreased appetite [Unknown]
